FAERS Safety Report 8756910 (Version 1)
Quarter: 2012Q4

REPORT INFORMATION
  Report Type: 
  Country: US (occurrence: US)
  Receive Date: 20120828
  Receipt Date: 20120828
  Transmission Date: 20130627
  Serious: Yes (Other)
  Sender: FDA-Public Use
  Company Number: US-NOVOPROD-358626

PATIENT
  Age: 53 Year
  Sex: Male

DRUGS (1)
  1. VICTOZA [Suspect]
     Indication: TYPE 2 DIABETES MELLITUS
     Dosage: UNK UNK, qd
     Route: 058
     Dates: start: 201108, end: 201108

REACTIONS (1)
  - Thyroid neoplasm [Recovered/Resolved]
